FAERS Safety Report 20422946 (Version 2)
Quarter: 2022Q1

REPORT INFORMATION
  Report Type: Spontaneous
  Country: DE (occurrence: DE)
  Receive Date: 20220203
  Receipt Date: 20220222
  Transmission Date: 20220423
  Serious: Yes (Other)
  Sender: FDA-Public Use
  Company Number: DE-PFIZER INC-202200133076

PATIENT
  Age: 57 Year
  Sex: Male

DRUGS (1)
  1. INLYTA [Suspect]
     Active Substance: AXITINIB
     Indication: Renal cancer metastatic
     Dosage: 5 MG, 2X/DAY (MORNING AND EVENING)

REACTIONS (5)
  - Cachexia [Recovering/Resolving]
  - General physical health deterioration [Recovering/Resolving]
  - Weight decreased [Unknown]
  - Neoplasm progression [Unknown]
  - Fatigue [Unknown]
